FAERS Safety Report 7221626-6 (Version None)
Quarter: 2011Q1

REPORT INFORMATION
  Report Type: 
  Country: None (occurrence: None)
  Receive Date: 20110112
  Receipt Date: 20110104
  Transmission Date: 20110831
  Serious: Yes (Hospitalization, Other)
  Sender: FDA-Public Use
  Company Number: US-ROCHE-438842

PATIENT
  Sex: Female
  Weight: 62.6 kg

DRUGS (2)
  1. ACCUTANE [Suspect]
     Route: 048
     Dates: start: 19920930, end: 19930112
  2. ACCUTANE [Suspect]
     Route: 048
     Dates: start: 19950710, end: 19951016

REACTIONS (14)
  - COLITIS ULCERATIVE [None]
  - ANAEMIA [None]
  - PSORIASIS [None]
  - COLITIS [None]
  - BRONCHITIS [None]
  - CROHN'S DISEASE [None]
  - VIRAL INFECTION [None]
  - INFLAMMATORY BOWEL DISEASE [None]
  - PERIRECTAL ABSCESS [None]
  - FISTULA [None]
  - PLEURISY [None]
  - SUICIDAL IDEATION [None]
  - DEPRESSION [None]
  - ANXIETY DISORDER [None]
